FAERS Safety Report 10020167 (Version 3)
Quarter: 2018Q2

REPORT INFORMATION
  Report Type: Report from Study
  Country: US (occurrence: US)
  Receive Date: 20140319
  Receipt Date: 20180619
  Transmission Date: 20180711
  Serious: Yes (Other)
  Sender: FDA-Public Use
  Company Number: US-ROCHE-1362815

PATIENT
  Age: 13 Year
  Sex: Male
  Weight: 48.4 kg

DRUGS (5)
  1. NUTROPIN AQ [Suspect]
     Active Substance: SOMATROPIN
     Indication: BODY HEIGHT BELOW NORMAL
     Dosage: QUANTITY : 7 PENS
     Route: 058
     Dates: start: 20120925
  2. NUTROPIN AQ [Suspect]
     Active Substance: SOMATROPIN
     Dosage: QUANTITY : 7 PENS
     Route: 058
     Dates: start: 20121105
  3. NUTROPIN AQ [Suspect]
     Active Substance: SOMATROPIN
     Route: 058
  4. NUTROPIN AQ [Suspect]
     Active Substance: SOMATROPIN
     Route: 058
  5. NUTROPIN AQ [Suspect]
     Active Substance: SOMATROPIN
     Route: 058

REACTIONS (8)
  - Pituitary tumour benign [Unknown]
  - Arthralgia [Unknown]
  - Facial pain [Unknown]
  - Blood creatinine decreased [Unknown]
  - Migraine [Unknown]
  - Pain in extremity [Unknown]
  - Asthenia [Unknown]
  - Sebaceous naevus [Unknown]

NARRATIVE: CASE EVENT DATE: 20130813
